FAERS Safety Report 18275543 (Version 1)
Quarter: 2020Q3

REPORT INFORMATION
  Report Type: Spontaneous
  Country: US (occurrence: US)
  Receive Date: 20200917
  Receipt Date: 20200917
  Transmission Date: 20201103
  Serious: Yes (Death, Life-Threatening, Hospitalization, Other)
  Sender: FDA-Public Use
  Company Number: US-DRREDDYS-USA/USA/20/0126954

PATIENT
  Age: 56 Year
  Sex: Female
  Weight: 33 kg

DRUGS (1)
  1. HEPARIN SODIUM. [Suspect]
     Active Substance: HEPARIN SODIUM
     Indication: THROMBOSIS PROPHYLAXIS
     Dosage: (454 UNITS/KG/D)

REACTIONS (11)
  - Escherichia bacteraemia [Not Recovered/Not Resolved]
  - Hypotension [Not Recovered/Not Resolved]
  - Pneumonia aspiration [Unknown]
  - Acute kidney injury [Unknown]
  - Cardiac arrest [Recovered/Resolved]
  - Haemoglobin decreased [Fatal]
  - Leukocytosis [Not Recovered/Not Resolved]
  - Abdominal wall haematoma [Not Recovered/Not Resolved]
  - Septic shock [Fatal]
  - Subarachnoid haemorrhage [Not Recovered/Not Resolved]
  - Colitis ischaemic [Unknown]
